FAERS Safety Report 10222980 (Version 2)
Quarter: 2014Q2

REPORT INFORMATION
  Report Type: Report from Study
  Country: AT (occurrence: AT)
  Receive Date: 20140607
  Receipt Date: 20140607
  Transmission Date: 20141212
  Serious: Yes (Other)
  Sender: FDA-Public Use
  Company Number: PHHY2013AT133572

PATIENT
  Sex: 0

DRUGS (1)
  1. GLIVEC [Suspect]
     Dosage: 400 MG, UNK

REACTIONS (4)
  - Feeling cold [Unknown]
  - Fatigue [Unknown]
  - Oedema peripheral [Unknown]
  - Oedema [Unknown]
